FAERS Safety Report 4302285-9 (Version None)
Quarter: 2004Q1

REPORT INFORMATION
  Report Type: 
  Country: None (occurrence: None)
  Receive Date: 20040223
  Receipt Date: 20040213
  Transmission Date: 20041129
  Serious: Yes (Hospitalization)
  Sender: FDA-Public Use
  Company Number: WAES 0402AUS00161

PATIENT
  Age: 68 Year
  Sex: Male
  Weight: 85 kg

DRUGS (8)
  1. ASPIRIN [Concomitant]
  2. ATENOLOL [Suspect]
     Dates: end: 19930806
  3. AZATHIOPRINE [Suspect]
     Dates: end: 19930805
  4. CYCLOSPORINE [Concomitant]
  5. DILTIAZEM HYDROCHLORIDE [Concomitant]
     Dates: end: 19930818
  6. ENALAPRIL MALEATE [Concomitant]
     Dates: end: 19930815
  7. FUROSEMIDE [Concomitant]
     Route: 048
  8. ZOCOR [Suspect]
     Route: 048
     Dates: start: 19920101, end: 19930808

REACTIONS (5)
  - BLOOD CREATINE PHOSPHOKINASE INCREASED [None]
  - COUGH [None]
  - FATIGUE [None]
  - MYALGIA [None]
  - VOMITING [None]
